FAERS Safety Report 6902438-7 (Version None)
Quarter: 2010Q3

REPORT INFORMATION
  Report Type: 
  Country: None (occurrence: None)
  Receive Date: 20100803
  Receipt Date: 20080527
  Transmission Date: 20110219
  Serious: No
  Sender: FDA-Public Use
  Company Number: US-PFIZER INC-2008041705

PATIENT
  Sex: Female
  Weight: 54.4 kg

DRUGS (16)
  1. LYRICA [Suspect]
     Indication: FIBROMYALGIA
     Dates: start: 20080508
  2. LIPITOR [Concomitant]
     Indication: BLOOD CHOLESTEROL INCREASED
     Dates: end: 20080507
  3. SIMVASTATIN [Concomitant]
     Indication: BLOOD CHOLESTEROL INCREASED
     Dates: start: 20080508
  4. ADVAIR DISKUS 100/50 [Concomitant]
     Indication: ASTHMA
  5. ASTELIN [Concomitant]
     Indication: SINUS CONGESTION
     Route: 045
  6. NASONEX [Concomitant]
     Indication: SINUS CONGESTION
     Route: 045
  7. ALBUTEROL [Concomitant]
     Indication: ASTHMA
  8. MONTELUKAST SODIUM [Concomitant]
     Indication: ASTHMA
  9. RANITIDINE [Concomitant]
     Indication: GASTROOESOPHAGEAL REFLUX DISEASE
  10. PANTOPRAZOLE [Concomitant]
     Indication: GASTROOESOPHAGEAL REFLUX DISEASE
  11. FEXOFENADINE [Concomitant]
     Indication: SINUS CONGESTION
  12. ACETYLSALICYLIC ACID SRT [Concomitant]
  13. FISH OIL [Concomitant]
  14. IRON [Concomitant]
  15. COENZYME Q10 [Concomitant]
  16. CALCIUM [Concomitant]

REACTIONS (4)
  - DIZZINESS [None]
  - DRY MOUTH [None]
  - FEELING ABNORMAL [None]
  - SOMNOLENCE [None]
